FAERS Safety Report 12783095 (Version 4)
Quarter: 2017Q2

REPORT INFORMATION
  Report Type: Spontaneous
  Country: US (occurrence: US)
  Receive Date: 20160927
  Receipt Date: 20170413
  Transmission Date: 20170830
  Serious: Yes (Life-Threatening, Hospitalization, Other)
  Sender: FDA-Public Use
  Company Number: US-SUN PHARMACEUTICAL INDUSTRIES LTD-2016US-124743

PATIENT
  Age: 20 Year
  Sex: Male

DRUGS (3)
  1. LOPERAMIDE [Suspect]
     Active Substance: LOPERAMIDE
     Dosage: 48 MG, DAILY 24 PILLS EACH MORNING
     Route: 065
     Dates: start: 201401
  2. LOPERAMIDE [Suspect]
     Active Substance: LOPERAMIDE
     Dosage: 288 MG, DAILY HIGH DOSES, 2 BOTTLES OF 2MG TABLETS (144 PILLS EACH MORNING)
     Route: 065
     Dates: start: 201507
  3. LOPERAMIDE [Suspect]
     Active Substance: LOPERAMIDE
     Indication: DRUG WITHDRAWAL SYNDROME
     Dosage: 144 MG, DAILY 72 PILLS
     Route: 065

REACTIONS (6)
  - Ventricular arrhythmia [Recovered/Resolved]
  - Syncope [Unknown]
  - Drug use disorder [Unknown]
  - Congestive cardiomyopathy [Recovered/Resolved]
  - Torsade de pointes [Recovered/Resolved]
  - Electrocardiogram QT prolonged [Recovered/Resolved]

NARRATIVE: CASE EVENT DATE: 201508
